FAERS Safety Report 4413595-9 (Version None)
Quarter: 2004Q2

REPORT INFORMATION
  Report Type: 
  Country: None (occurrence: None)
  Receive Date: 20040630
  Receipt Date: 20040506
  Transmission Date: 20050107
  Serious: No
  Sender: FDA-Public Use
  Company Number: 04P-163-0259870-00

PATIENT
  Age: 52 Year
  Sex: Female
  Weight: 77.1115 kg

DRUGS (15)
  1. HUMIRA [Suspect]
     Indication: RHEUMATOID ARTHRITIS
     Dosage: 40 MG, 1 IN 2 WK, SUBCUTANEOUS
     Route: 058
     Dates: start: 20040301
  2. METHOTREXATE [Concomitant]
  3. DYAZIDE [Concomitant]
  4. NABUMETONE [Concomitant]
  5. FOLIC ACID [Concomitant]
  6. ESOMEPRAZOLE [Concomitant]
  7. LIBRAX [Concomitant]
  8. CLARINEX [Concomitant]
  9. FLUOXETINE HCL [Concomitant]
  10. RESTASIS [Concomitant]
  11. ARTIFICIAL TEARS [Concomitant]
  12. NOSE SPRAY [Concomitant]
  13. METRONIDAZOLE [Concomitant]
  14. PREVIDENT RINSE [Concomitant]
  15. PREVIDENT GEL [Concomitant]

REACTIONS (3)
  - INJECTION SITE BURNING [None]
  - INJECTION SITE ERYTHEMA [None]
  - INJECTION SITE WARMTH [None]
